FAERS Safety Report 7880773-6 (Version None)
Quarter: 2011Q4

REPORT INFORMATION
  Report Type: 
  Country: None (occurrence: None)
  Receive Date: 20111101
  Receipt Date: 20111021
  Transmission Date: 20120403
  Serious: Yes (Hospitalization, Other)
  Sender: FDA-Public Use
  Company Number: PHBS2006BR11737

PATIENT
  Sex: Female
  Weight: 69 kg

DRUGS (8)
  1. ACETAMINOPHEN W/ CODEINE [Concomitant]
     Indication: OSTEOARTHRITIS
     Dosage: 1 DF, DAILY
     Route: 048
  2. DIOVAN [Suspect]
     Dosage: 1 DF, IN MORNING
     Route: 048
     Dates: start: 20110828
  3. EXFORGE [Suspect]
     Indication: HYPERTENSION
     Dosage: 1 DF, (VALS 160 MG / AMLO 5 MG) IN THE MORNING
     Route: 048
     Dates: start: 20060802
  4. ATENOLOL [Concomitant]
     Indication: HYPERTENSION
     Dosage: 1 DF, AT NIGHT
     Route: 048
  5. ASPIRIN [Concomitant]
     Dosage: 1 DF, DAY
     Route: 048
  6. HYDROCHLOROTHIAZIDE [Concomitant]
     Indication: HYPERTENSION
     Dosage: 1 DF, IN MORNING
     Route: 048
  7. ASPIRIN [Concomitant]
     Indication: ANTICOAGULANT THERAPY
     Dosage: 2 DF, QD
     Route: 048
     Dates: start: 20080101
  8. DIOVAN [Suspect]
     Indication: HYPERTENSION
     Dosage: 160 MG, UNK
     Route: 048

REACTIONS (7)
  - CEREBRAL ISCHAEMIA [None]
  - OEDEMA PERIPHERAL [None]
  - NAUSEA [None]
  - HEAD DISCOMFORT [None]
  - RESTLESS LEGS SYNDROME [None]
  - HYPERTENSION [None]
  - DEPRESSION [None]
